FAERS Safety Report 9466104 (Version 1)
Quarter: 2013Q3

REPORT INFORMATION
  Report Type: Spontaneous
  Country: US (occurrence: US)
  Receive Date: 20130820
  Receipt Date: 20130820
  Transmission Date: 20140515
  Serious: Yes (Disabling, Other)
  Sender: FDA-Public Use
  Company Number: US-ACTAVIS-2013-14137

PATIENT
  Age: 79 Year
  Sex: Male
  Weight: 82 kg

DRUGS (13)
  1. LEVOFLOXACIN (UNKNOWN) [Suspect]
     Indication: PNEUMONIA
     Dosage: 500 MG, DAILY
     Route: 042
  2. LEVOFLOXACIN (UNKNOWN) [Suspect]
     Indication: CHRONIC OBSTRUCTIVE PULMONARY DISEASE
     Dosage: UNK
     Route: 048
  3. LEVOFLOXACIN (UNKNOWN) [Suspect]
     Dosage: 500 MG, DAILY
     Route: 042
  4. DEXAMETHASONE (WATSON LABORATORIES) [Suspect]
     Indication: CHRONIC OBSTRUCTIVE PULMONARY DISEASE
     Dosage: 4 MG, Q6H
     Route: 042
  5. PREDNISONE (WATSON LABORATORIES) [Suspect]
     Indication: CHRONIC OBSTRUCTIVE PULMONARY DISEASE
     Dosage: 40 MG, BID
     Route: 065
  6. HYDROCHLOROTHIAZIDE [Concomitant]
     Indication: HYPERTENSION
     Dosage: 25 MG, DAILY
     Route: 065
  7. THEOPHYLLINE [Concomitant]
     Indication: ASTHMA
     Dosage: 300 MG, BID
     Route: 048
  8. POTASSIUM [Concomitant]
     Indication: PRODUCT USED FOR UNKNOWN INDICATION
     Dosage: 20 MEQ, DAILY
     Route: 065
  9. ALBUTEROL                          /00139501/ [Concomitant]
     Indication: CHRONIC OBSTRUCTIVE PULMONARY DISEASE
     Dosage: UNK
     Route: 055
  10. IPRATROPIUM BROMIDE [Concomitant]
     Indication: CHRONIC OBSTRUCTIVE PULMONARY DISEASE
     Dosage: UNK
     Route: 055
  11. LISINOPRIL [Concomitant]
     Indication: HYPERTENSION
     Dosage: 10 MG, DAILY
     Route: 065
  12. LOSARTAN [Concomitant]
     Indication: HYPERTENSION
     Dosage: UNK
     Route: 065
  13. AMLODIPINE [Concomitant]
     Indication: HYPERTENSION
     Dosage: 10 MG, DAILY
     Route: 065

REACTIONS (2)
  - Tendon rupture [Recovering/Resolving]
  - Incorrect dose administered [Recovering/Resolving]
